FAERS Safety Report 8846100 (Version 7)
Quarter: 2013Q2

REPORT INFORMATION
  Report Type: Spontaneous
  Country: US (occurrence: US)
  Receive Date: 20121017
  Receipt Date: 20130411
  Transmission Date: 20140414
  Serious: Yes (Hospitalization, Disabling, Other)
  Sender: FDA-Public Use
  Company Number: US-009507513-1201USA00252

PATIENT
  Sex: Female

DRUGS (6)
  1. FOSAMAX [Suspect]
     Indication: OSTEOPOROSIS PROPHYLAXIS
     Dosage: 70 MG, QW
     Route: 048
     Dates: start: 200502
  2. ALENDRONATE SODIUM [Suspect]
     Indication: OSTEOPOROSIS PROPHYLAXIS
     Dosage: 70 MG QW
     Route: 048
     Dates: start: 200502
  3. CALCIUM (UNSPECIFIED) [Concomitant]
     Dosage: 500-1200MG/DAY
     Dates: start: 1995
  4. VITAMIN D (UNSPECIFIED) [Concomitant]
     Dosage: 1000 MG, QD
     Dates: start: 1995
  5. VITAMINS (UNSPECIFIED) [Concomitant]
     Dosage: ONCE DAILY
     Dates: start: 1995
  6. PREDNISONE [Concomitant]
     Indication: LUNG DISORDER
     Dosage: UNK
     Dates: start: 1999

REACTIONS (39)
  - Femur fracture [Recovering/Resolving]
  - Internal fixation of fracture [Recovering/Resolving]
  - Fall [Unknown]
  - Lung transplant rejection [Recovered/Resolved with Sequelae]
  - Lung transplant [Unknown]
  - Pulmonary embolism [Unknown]
  - Diverticulum [Unknown]
  - International normalised ratio increased [Unknown]
  - Hypoventilation [Unknown]
  - Agitation [Unknown]
  - Pubis fracture [Unknown]
  - Fractured sacrum [Unknown]
  - Haematochezia [Unknown]
  - Diverticulitis [Unknown]
  - Angiodysplasia [Unknown]
  - Neoplasm [Unknown]
  - Colitis [Unknown]
  - Haemorrhoids [Unknown]
  - Nausea [Unknown]
  - Vomiting [Unknown]
  - Diarrhoea [Unknown]
  - Rash erythematous [Unknown]
  - Respiratory syncytial virus infection [Unknown]
  - Chest pain [Not Recovered/Not Resolved]
  - Fatigue [Unknown]
  - Cough [Unknown]
  - Visual impairment [Unknown]
  - Epistaxis [Unknown]
  - Impaired gastric emptying [Unknown]
  - Anaemia [Unknown]
  - International normalised ratio increased [Unknown]
  - Anxiety [Unknown]
  - Arthroscopy [Unknown]
  - Depression [Unknown]
  - Tonsillectomy [Unknown]
  - Abdominal pain upper [Unknown]
  - Headache [Unknown]
  - Constipation [Unknown]
  - Musculoskeletal pain [Unknown]
